FAERS Safety Report 5202064-4 (Version None)
Quarter: 2007Q1

REPORT INFORMATION
  Report Type: 
  Country: None (occurrence: None)
  Receive Date: 20070103
  Receipt Date: 20061221
  Transmission Date: 20070707
  Serious: Yes (Death)
  Sender: FDA-Public Use
  Company Number: 02100-JPN-06-0654

PATIENT
  Age: 81 Year
  Sex: Male

DRUGS (5)
  1. CILOSTAZOL [Suspect]
     Indication: CEREBRAL INFARCTION
     Dosage: 200 MG
     Route: 048
  2. ASPIRIN [Suspect]
     Dosage: 162 MG
     Route: 048
  3. FLUVOXAMINE MALEATE [Concomitant]
  4. NILVADIPINE [Concomitant]
  5. RANITIDINE HYDROCHLORIDE [Concomitant]

REACTIONS (1)
  - CEREBRAL HAEMORRHAGE [None]
